FAERS Safety Report 5546044-8 (Version None)
Quarter: 2007Q4

REPORT INFORMATION
  Report Type: 
  Country: None (occurrence: None)
  Receive Date: 20071211
  Receipt Date: 20070831
  Transmission Date: 20080405
  Serious: No
  Sender: FDA-Public Use
  Company Number: US-BRISTOL-MYERS SQUIBB COMPANY-13894852

PATIENT
  Age: 71 Year
  Sex: Female
  Weight: 63 kg

DRUGS (4)
  1. EMSAM [Suspect]
     Indication: DEPRESSION
     Route: 062
  2. MIRAPEX [Concomitant]
  3. CLONAZEPAM [Concomitant]
  4. REQUIP [Concomitant]

REACTIONS (2)
  - COORDINATION ABNORMAL [None]
  - JUDGEMENT IMPAIRED [None]
